FAERS Safety Report 17195515 (Version 1)
Quarter: 2020Q1

REPORT INFORMATION
  Report Type: Spontaneous
  Country: US (occurrence: US)
  Receive Date: 20191223
  Receipt Date: 20191223
  Transmission Date: 20200409
  Serious: No
  Sender: FDA-Public Use
  Company Number: None

PATIENT
  Age: 58 Year
  Sex: Female
  Weight: 75.57 kg

DRUGS (3)
  1. THALOMID [Suspect]
     Active Substance: THALIDOMIDE
     Indication: SKIN LESION
     Route: 048
     Dates: start: 20191031, end: 20191223
  2. DAPSONE. [Concomitant]
     Active Substance: DAPSONE
  3. THALOMID [Suspect]
     Active Substance: THALIDOMIDE
     Indication: ANTINUCLEAR ANTIBODY POSITIVE
     Route: 048
     Dates: start: 20191031, end: 20191223

REACTIONS (4)
  - Paraesthesia [None]
  - Neuropathy peripheral [None]
  - Rash [None]
  - Carpal tunnel syndrome [None]

NARRATIVE: CASE EVENT DATE: 20191216
